FAERS Safety Report 9109668 (Version 1)
Quarter: 2013Q1

REPORT INFORMATION
  Report Type: Spontaneous
  Country: US (occurrence: US)
  Receive Date: 20130222
  Receipt Date: 20130222
  Transmission Date: 20140127
  Serious: Yes (Other)
  Sender: FDA-Public Use
  Company Number: US-AMGEN-USASP2013011142

PATIENT
  Age: 65 Year
  Sex: Female

DRUGS (8)
  1. PROLIA [Suspect]
     Indication: OSTEOPOROSIS POSTMENOPAUSAL
     Dosage: UNK
     Dates: start: 20120612
  2. SYNTHROID [Concomitant]
  3. ZOCOR [Concomitant]
  4. CALTRATE                           /00944201/ [Concomitant]
  5. ASPIRIN [Concomitant]
  6. LOPRESSOR [Concomitant]
  7. ERGOCALCIFEROL [Concomitant]
     Dosage: 50000 UNK
  8. NITROGLYCERIN [Concomitant]

REACTIONS (2)
  - Blood calcium abnormal [Unknown]
  - Blood parathyroid hormone abnormal [Unknown]
